FAERS Safety Report 8045171-3 (Version None)
Quarter: 2012Q1

REPORT INFORMATION
  Report Type: 
  Country: None (occurrence: None)
  Receive Date: 20120113
  Receipt Date: 20110607
  Transmission Date: 20120608
  Serious: Yes (Hospitalization)
  Sender: FDA-Public Use
  Company Number: BR-ASTRAZENECA-2011SE35389

PATIENT
  Age: 77 Year
  Sex: Female

DRUGS (4)
  1. SEROQUEL [Suspect]
     Indication: DEMENTIA ALZHEIMER'S TYPE
     Route: 048
     Dates: start: 20110105
  2. SEROQUEL [Suspect]
     Indication: FRONTOTEMPORAL DEMENTIA
     Route: 048
     Dates: start: 20110105
  3. SEROQUEL [Suspect]
     Route: 048
  4. SEROQUEL [Suspect]
     Route: 048

REACTIONS (4)
  - HALLUCINATION [None]
  - OFF LABEL USE [None]
  - MEMORY IMPAIRMENT [None]
  - HALLUCINATION, AUDITORY [None]
